FAERS Safety Report 5462966-0 (Version None)
Quarter: 2007Q3

REPORT INFORMATION
  Report Type: 
  Country: None (occurrence: None)
  Receive Date: 20070920
  Receipt Date: 20070614
  Transmission Date: 20080115
  Serious: No
  Sender: FDA-Public Use
  Company Number: US-BAUSCH-2007BL002005

PATIENT
  Sex: Female

DRUGS (1)
  1. ZYLET [Suspect]
     Route: 047
     Dates: start: 20070608, end: 20070610

REACTIONS (2)
  - APHONIA [None]
  - BRONCHITIS [None]
